FAERS Safety Report 5818816-3 (Version None)
Quarter: 2008Q3

REPORT INFORMATION
  Report Type: 
  Country: None (occurrence: None)
  Receive Date: 20080723
  Receipt Date: 20080723
  Transmission Date: 20090109
  Serious: Yes (Death, Other)
  Sender: FDA-Public Use
  Company Number: None

PATIENT
  Age: 72 Year
  Sex: Male
  Weight: 70.3075 kg

DRUGS (1)
  1. HEPARIN LOCK-FLUSH [Suspect]
     Indication: PREOPERATIVE CARE
     Dosage: 100 UNITS BLOOD TRANSFUSIONS IV
     Route: 042
     Dates: start: 20080101, end: 20080508

REACTIONS (2)
  - POOR QUALITY DRUG ADMINISTERED [None]
  - THERAPEUTIC PRODUCT CONTAMINATION [None]
